FAERS Safety Report 8618651-7 (Version None)
Quarter: 2012Q3

REPORT INFORMATION
  Report Type: 
  Country: None (occurrence: None)
  Receive Date: 20120824
  Receipt Date: 20120814
  Transmission Date: 20120928
  Serious: Yes (Hospitalization)
  Sender: FDA-Public Use
  Company Number: JP-UCBSA-063972

PATIENT
  Sex: Male

DRUGS (2)
  1. KEPPRA [Suspect]
     Route: 048
  2. DEPAKENE [Concomitant]
     Route: 048

REACTIONS (3)
  - WHITE BLOOD CELL COUNT DECREASED [None]
  - THROMBOCYTOPENIA [None]
  - ANAEMIA [None]
